FAERS Safety Report 17670473 (Version 2)
Quarter: 2020Q2

REPORT INFORMATION
  Report Type: Spontaneous
  Country: CN (occurrence: CN)
  Receive Date: 20200415
  Receipt Date: 20200422
  Transmission Date: 20200713
  Serious: Yes (Other)
  Sender: FDA-Public Use
  Company Number: CN-ROCHE-2581617

PATIENT
  Age: 50 Year
  Sex: Male
  Weight: 95 kg

DRUGS (7)
  1. VINDESINE [Concomitant]
     Active Substance: VINDESINE
     Indication: B-CELL LYMPHOMA
     Dosage: ON DAY 1
     Route: 065
     Dates: start: 20180821
  2. PIRARUBICIN [Concomitant]
     Active Substance: PIRARUBICIN
     Indication: B-CELL LYMPHOMA
     Dosage: ON DAY 1
     Route: 065
     Dates: start: 20180821
  3. PREDNISONE. [Concomitant]
     Active Substance: PREDNISONE
     Indication: B-CELL LYMPHOMA
     Dosage: FROM DAY 1 TO DAY 5
     Route: 065
     Dates: start: 20180821
  4. LENALIDOMIDE [Concomitant]
     Active Substance: LENALIDOMIDE
     Indication: B-CELL LYMPHOMA
     Route: 065
     Dates: start: 20200330
  5. RITUXAN [Suspect]
     Active Substance: RITUXIMAB
     Indication: B-CELL LYMPHOMA
     Dosage: ON DAY 0
     Route: 065
     Dates: start: 20180821
  6. RITUXAN [Suspect]
     Active Substance: RITUXIMAB
     Dosage: ON DAY 0
     Route: 065
     Dates: start: 20200325
  7. CYCLOPHOSPHAMIDE. [Concomitant]
     Active Substance: CYCLOPHOSPHAMIDE
     Indication: B-CELL LYMPHOMA
     Dosage: ON DAY 1
     Route: 065
     Dates: start: 20180821

REACTIONS (2)
  - Pericardial effusion [Unknown]
  - Blood urine present [Unknown]
